FAERS Safety Report 9816404 (Version 1)
Quarter: 2014Q1

REPORT INFORMATION
  Report Type: Spontaneous
  Country: US (occurrence: US)
  Receive Date: 20140114
  Receipt Date: 20140114
  Transmission Date: 20141002
  Serious: No
  Sender: FDA-Public Use
  Company Number: US-TARO-2013P1004448

PATIENT
  Age: 24 Year
  Sex: Female
  Weight: 61.24 kg

DRUGS (2)
  1. DESOXIMETASONE CREAM USP 0.05% [Suspect]
     Indication: ECZEMA
     Route: 061
     Dates: start: 201210, end: 201211
  2. UNSPECIFIED ANTIHISTAMINE PILL [Concomitant]

REACTIONS (1)
  - Drug ineffective [Not Recovered/Not Resolved]
